FAERS Safety Report 6112559-7 (Version None)
Quarter: 2009Q1

REPORT INFORMATION
  Report Type: 
  Country: None (occurrence: None)
  Receive Date: 20090312
  Receipt Date: 20090227
  Transmission Date: 20090719
  Serious: Yes (Hospitalization)
  Sender: FDA-Public Use
  Company Number: IN-ELI_LILLY_AND_COMPANY-IN200902007662

PATIENT
  Sex: Male
  Weight: 36 kg

DRUGS (1)
  1. TERIPARATIDE [Suspect]
     Indication: OSTEOPOROTIC FRACTURE
     Dosage: 20 U, DAILY (1/D)
     Route: 058
     Dates: start: 20080219

REACTIONS (1)
  - PAIN IN EXTREMITY [None]
